FAERS Safety Report 6063928-5 (Version None)
Quarter: 2009Q1

REPORT INFORMATION
  Report Type: 
  Country: None (occurrence: None)
  Receive Date: 20090204
  Receipt Date: 20090126
  Transmission Date: 20090719
  Serious: Yes (Other)
  Sender: FDA-Public Use
  Company Number: PHHY2008DK09201

PATIENT
  Sex: Female
  Weight: 68 kg

DRUGS (3)
  1. GLEEVEC [Suspect]
     Indication: CHRONIC MYELOID LEUKAEMIA
     Dosage: 400 MG, QD
     Route: 048
     Dates: start: 20041214
  2. CENTYL MED KALIUMKLORID [Concomitant]
     Indication: POLYURIA
     Dosage: 1 DF, QD
     Route: 048
     Dates: start: 20050610
  3. CENTYL MED KALIUMKLORID [Concomitant]
     Indication: OEDEMA

REACTIONS (1)
  - RETINAL DETACHMENT [None]
